FAERS Safety Report 10574417 (Version 1)
Quarter: 2014Q4

REPORT INFORMATION
  Report Type: Spontaneous
  Country: US (occurrence: US)
  Receive Date: 20141110
  Receipt Date: 20141110
  Transmission Date: 20150529
  Serious: No
  Sender: FDA-Public Use
  Company Number: US-BAYER-2014-163158

PATIENT
  Age: 53 Year
  Sex: Female

DRUGS (1)
  1. CLIMARA [Suspect]
     Active Substance: ESTRADIOL
     Indication: MENOPAUSAL SYMPTOMS
     Dosage: 0.06 MG, UNK
     Route: 062

REACTIONS (8)
  - Night sweats [Recovered/Resolved]
  - Drug ineffective [None]
  - Insomnia [Recovered/Resolved]
  - Product adhesion issue [None]
  - Inappropriate schedule of drug administration [None]
  - Bruxism [Recovered/Resolved]
  - Thinking abnormal [Recovered/Resolved]
  - Feeling abnormal [Recovered/Resolved]
